FAERS Safety Report 18193771 (Version 4)
Quarter: 2021Q3

REPORT INFORMATION
  Report Type: Report from Study
  Country: CN (occurrence: CN)
  Receive Date: 20200825
  Receipt Date: 20210802
  Transmission Date: 20211014
  Serious: Yes (Hospitalization, Other)
  Sender: FDA-Public Use
  Company Number: NVSC2020CN231543

PATIENT
  Age: 30 Year
  Sex: Male
  Weight: 100 kg

DRUGS (6)
  1. ENTRESTO [Suspect]
     Active Substance: SACUBITRIL\VALSARTAN
     Dosage: 0 MG, UNKNOWN
     Route: 065
     Dates: start: 20201104, end: 20201104
  2. ENTRESTO [Suspect]
     Active Substance: SACUBITRIL\VALSARTAN
     Indication: CARDIAC FAILURE CHRONIC
     Dosage: 100 MG, BID
     Route: 048
     Dates: start: 20200701, end: 20201103
  3. ENTRESTO [Suspect]
     Active Substance: SACUBITRIL\VALSARTAN
     Dosage: 12.5 MG, UNKNOWN
     Route: 065
     Dates: start: 20201112, end: 20201114
  4. ENTRESTO [Suspect]
     Active Substance: SACUBITRIL\VALSARTAN
     Dosage: 0 MG, UNKNOWN
     Route: 065
     Dates: start: 20201111, end: 20201111
  5. ENTRESTO [Suspect]
     Active Substance: SACUBITRIL\VALSARTAN
     Dosage: 12.5 MG, UNKNOWN
     Route: 065
     Dates: start: 20201105, end: 20201110
  6. ENTRESTO [Suspect]
     Active Substance: SACUBITRIL\VALSARTAN
     Dosage: 25 MG, UNKNOWN
     Route: 065
     Dates: start: 20201115

REACTIONS (26)
  - Cardiac failure chronic [Recovering/Resolving]
  - Diarrhoea [Recovering/Resolving]
  - Nausea [Recovered/Resolved]
  - Oropharyngeal pain [Recovered/Resolved]
  - Palpitations [Recovering/Resolving]
  - Asthenia [Unknown]
  - Hyperuricaemia [Recovering/Resolving]
  - Weight increased [Recovering/Resolving]
  - Tachypnoea [Recovered/Resolved]
  - Urine output decreased [Recovered/Resolved]
  - Oedema peripheral [Recovered/Resolved]
  - Abdominal distension [Recovering/Resolving]
  - Hypoaesthesia [Not Recovered/Not Resolved]
  - Rhinorrhoea [Not Recovered/Not Resolved]
  - Vomiting [Recovered/Resolved]
  - Cardiac failure acute [Recovering/Resolving]
  - Nasopharyngitis [Not Recovered/Not Resolved]
  - Tachypnoea [Recovering/Resolving]
  - Decreased appetite [Recovered/Resolved]
  - Gout [Not Recovered/Not Resolved]
  - Dyspnoea paroxysmal nocturnal [Recovering/Resolving]
  - Chest discomfort [Recovered/Resolved]
  - Orthopnoea [Recovering/Resolving]
  - Cough [Recovered/Resolved]
  - Oedema peripheral [Recovered/Resolved]
  - Cardiomyopathy [Recovering/Resolving]

NARRATIVE: CASE EVENT DATE: 20200805
